FAERS Safety Report 20591907 (Version 1)
Quarter: 2022Q1

REPORT INFORMATION
  Report Type: Spontaneous
  Country: US (occurrence: US)
  Receive Date: 20220314
  Receipt Date: 20220314
  Transmission Date: 20220424
  Serious: No
  Sender: FDA-Public Use
  Company Number: US-PFIZER INC-202200257988

PATIENT
  Age: 53 Year
  Sex: Female

DRUGS (1)
  1. XELJANZ XR [Suspect]
     Active Substance: TOFACITINIB CITRATE
     Indication: Rheumatoid arthritis
     Dosage: 11 MG, 1X/DAY
     Route: 048

REACTIONS (8)
  - Drug ineffective [Unknown]
  - Pain [Unknown]
  - Nodule [Unknown]
  - Weight decreased [Unknown]
  - Alopecia [Unknown]
  - Full blood count decreased [Unknown]
  - Gait disturbance [Unknown]
  - Joint swelling [Unknown]
